FAERS Safety Report 9192124 (Version 1)
Quarter: 2013Q1

REPORT INFORMATION
  Report Type: Spontaneous
  Country: US (occurrence: US)
  Receive Date: 20130327
  Receipt Date: 20130327
  Transmission Date: 20140127
  Serious: No
  Sender: FDA-Public Use
  Company Number: US-009507513-1303USA012978

PATIENT
  Age: 31 Year
  Sex: Female

DRUGS (2)
  1. NASONEX [Suspect]
     Indication: HYPERSENSITIVITY
     Dosage: 2 SPRAYS IN EACH NOSTRIL, QD
     Route: 045
     Dates: start: 201303
  2. STUDY DRUG (UNSPECIFIED) [Concomitant]
     Indication: CONTRACEPTION

REACTIONS (1)
  - Nasal discomfort [Not Recovered/Not Resolved]
